FAERS Safety Report 9363098 (Version 5)
Quarter: 2013Q3

REPORT INFORMATION
  Report Type: Spontaneous
  Country: US (occurrence: US)
  Receive Date: 20130624
  Receipt Date: 20130814
  Transmission Date: 20140515
  Serious: No
  Sender: FDA-Public Use
  Company Number: US-PFIZER INC-2013187642

PATIENT
  Age: 49 Year
  Sex: Female
  Weight: 49.4 kg

DRUGS (5)
  1. LYRICA [Suspect]
     Indication: FIBROMYALGIA
     Dosage: 75 MG, 3X/DAY
     Dates: start: 2011
  2. LYRICA [Suspect]
     Indication: NEUROPATHY PERIPHERAL
     Dosage: 200 MG, 3X/DAY
     Dates: end: 20130721
  3. NEURONTIN [Suspect]
     Indication: NEUROPATHY PERIPHERAL
     Dosage: ONE TABLET OF 600MG IN MORNING AND TWO TABLETS OF 600MG AT BEDTIME
     Route: 048
     Dates: end: 20130721
  4. LEVODOPA-CARBIDOPA [Concomitant]
     Indication: RESTLESS LEGS SYNDROME
     Dosage: 25MG (CARBIDOPA)/250 MG (LEVODOPA), 1X/DAY
  5. ULTRAM [Concomitant]
     Dosage: UNK, 3X/DAY

REACTIONS (3)
  - Drug dispensing error [Unknown]
  - Drug ineffective [Unknown]
  - Pain [Unknown]
